FAERS Safety Report 13249539 (Version 1)
Quarter: 2017Q1

REPORT INFORMATION
  Report Type: Spontaneous
  Country: US (occurrence: US)
  Receive Date: 20170218
  Receipt Date: 20170218
  Transmission Date: 20170428
  Serious: No
  Sender: FDA-Public Use
  Company Number: US-ALLERGAN-1669091US

PATIENT
  Age: 86 Year
  Sex: Male

DRUGS (1)
  1. RESTASIS [Suspect]
     Active Substance: CYCLOSPORINE
     Indication: DRY EYE
     Dosage: 1 GTT, BID
     Route: 047
     Dates: start: 20160915

REACTIONS (5)
  - Eye disorder [Not Recovered/Not Resolved]
  - Dizziness [Not Recovered/Not Resolved]
  - Eye irritation [Not Recovered/Not Resolved]
  - Incorrect dose administered [Unknown]
  - Nausea [Not Recovered/Not Resolved]

NARRATIVE: CASE EVENT DATE: 20160915
